FAERS Safety Report 16187364 (Version 38)
Quarter: 2023Q2

REPORT INFORMATION
  Report Type: Spontaneous
  Country: CA (occurrence: CA)
  Receive Date: 20190412
  Receipt Date: 20230620
  Transmission Date: 20230721
  Serious: Yes (Other)
  Sender: FDA-Public Use
  Company Number: CA-CELLTRION INC.-2018CA021724

PATIENT

DRUGS (42)
  1. INFLECTRA [Suspect]
     Active Substance: INFLIXIMAB-DYYB
     Indication: Crohn^s disease
     Dosage: 400 MG Q 0, 2, 6, THEN EVERY 8 WEEKS
     Route: 042
     Dates: start: 20180418
  2. INFLECTRA [Suspect]
     Active Substance: INFLIXIMAB-DYYB
     Dosage: 400 MG, 0, 2, 6, THEN EVERY 8 WEEKS
     Route: 042
     Dates: start: 20180418
  3. INFLECTRA [Suspect]
     Active Substance: INFLIXIMAB-DYYB
     Dosage: 400 MG Q 0, 2, 6, THEN EVERY 8 WEEKS
     Route: 042
     Dates: start: 20180418, end: 20190304
  4. INFLECTRA [Suspect]
     Active Substance: INFLIXIMAB-DYYB
     Dosage: 400 MG Q 0, 2, 6, THEN EVERY 8 WEEKS
     Route: 042
     Dates: start: 20180530
  5. INFLECTRA [Suspect]
     Active Substance: INFLIXIMAB-DYYB
     Dosage: 400 MG Q 0, 2, 6, THEN EVERY 8 WEEKS
     Route: 042
     Dates: start: 20180530
  6. INFLECTRA [Suspect]
     Active Substance: INFLIXIMAB-DYYB
     Dosage: 400 MG Q 0, 2, 6, THEN EVERY 8 WEEKS
     Route: 042
     Dates: start: 20180801
  7. INFLECTRA [Suspect]
     Active Substance: INFLIXIMAB-DYYB
     Dosage: 400 MG Q 0, 2, 6, THEN EVERY 8 WEEKS
     Route: 042
     Dates: start: 20180919
  8. INFLECTRA [Suspect]
     Active Substance: INFLIXIMAB-DYYB
     Dosage: 400 MG Q 0, 2, 6, THEN EVERY 8 WEEKS
     Route: 042
     Dates: start: 20181113
  9. INFLECTRA [Suspect]
     Active Substance: INFLIXIMAB-DYYB
     Dosage: 400 MG Q 0, 2, 6, THEN EVERY 8 WEEKS
     Route: 042
     Dates: start: 20190107
  10. INFLECTRA [Suspect]
     Active Substance: INFLIXIMAB-DYYB
     Dosage: 400 MG Q 0, 2, 6, THEN EVERY 8 WEEKS
     Route: 042
     Dates: start: 20190304
  11. INFLECTRA [Suspect]
     Active Substance: INFLIXIMAB-DYYB
     Dosage: 800 MG, SINGLE (BOOSTER DOSE)
     Route: 042
     Dates: start: 20190308
  12. INFLECTRA [Suspect]
     Active Substance: INFLIXIMAB-DYYB
     Dosage: 800 MG, SINGLE (BOOSTER DOSE)
     Route: 042
     Dates: start: 20190308
  13. INFLECTRA [Suspect]
     Active Substance: INFLIXIMAB-DYYB
     Dosage: 800 MG, EVERY 8 WEEKS
     Route: 042
     Dates: start: 20190430, end: 20201001
  14. INFLECTRA [Suspect]
     Active Substance: INFLIXIMAB-DYYB
     Dosage: 800 MG, EVERY 8 WEEKS
     Route: 042
     Dates: start: 20190626
  15. INFLECTRA [Suspect]
     Active Substance: INFLIXIMAB-DYYB
     Dosage: 800 MG, EVERY 8 WEEKS
     Route: 042
     Dates: start: 20190821
  16. INFLECTRA [Suspect]
     Active Substance: INFLIXIMAB-DYYB
     Dosage: 800 MG, EVERY 8 WEEKS
     Route: 042
     Dates: start: 20191015
  17. INFLECTRA [Suspect]
     Active Substance: INFLIXIMAB-DYYB
     Dosage: 800 MG, EVERY 8 WEEKS
     Route: 042
     Dates: start: 20191211
  18. INFLECTRA [Suspect]
     Active Substance: INFLIXIMAB-DYYB
     Dosage: 800 MG, EVERY 8 WEEKS
     Route: 042
     Dates: start: 20200213
  19. INFLECTRA [Suspect]
     Active Substance: INFLIXIMAB-DYYB
     Dosage: 800 MG, EVERY 8 WEEKS
     Route: 042
     Dates: start: 20200414
  20. INFLECTRA [Suspect]
     Active Substance: INFLIXIMAB-DYYB
     Dosage: 800 MG, EVERY 8 WEEKS
     Route: 042
     Dates: start: 20200617
  21. INFLECTRA [Suspect]
     Active Substance: INFLIXIMAB-DYYB
     Dosage: 800 MG, EVERY 8 WEEKS
     Route: 042
     Dates: start: 20200804
  22. INFLECTRA [Suspect]
     Active Substance: INFLIXIMAB-DYYB
     Dosage: 800 MG, EVERY 8 WEEKS
     Route: 042
     Dates: start: 20201001, end: 20201001
  23. INFLECTRA [Suspect]
     Active Substance: INFLIXIMAB-DYYB
     Dosage: 800 MG, EVERY 8 WEEKS
     Route: 042
     Dates: start: 20210112, end: 20210112
  24. INFLECTRA [Suspect]
     Active Substance: INFLIXIMAB-DYYB
     Dosage: 900 MG 1 DOSE RE-INDUCTION
     Route: 042
     Dates: start: 20210112, end: 20210112
  25. INFLECTRA [Suspect]
     Active Substance: INFLIXIMAB-DYYB
     Dosage: 900 MG 2ND RE-INDUCTION DOSE
     Route: 042
     Dates: start: 20210201, end: 20210201
  26. INFLECTRA [Suspect]
     Active Substance: INFLIXIMAB-DYYB
     Dosage: 900 MG 3RD RE-INDUCTION DOSE
     Route: 042
     Dates: start: 20210301
  27. INFLECTRA [Suspect]
     Active Substance: INFLIXIMAB-DYYB
     Dosage: 900 MG 3RD INDUCTION DOSE
     Route: 042
     Dates: start: 20210301, end: 20210301
  28. INFLECTRA [Suspect]
     Active Substance: INFLIXIMAB-DYYB
     Dosage: 900 MG, EVERY 8 WEEKS
     Route: 042
     Dates: start: 20210426
  29. INFLECTRA [Suspect]
     Active Substance: INFLIXIMAB-DYYB
     Dosage: 900 MG, EVERY 8 WEEKS
     Route: 042
     Dates: start: 20210621
  30. INFLECTRA [Suspect]
     Active Substance: INFLIXIMAB-DYYB
     Dosage: 900 MG, EVERY 8 WEEKS
     Route: 042
     Dates: start: 20210816
  31. INFLECTRA [Suspect]
     Active Substance: INFLIXIMAB-DYYB
     Dosage: 900 MG, EVERY 8 WEEKS
     Route: 042
     Dates: start: 20211012
  32. INFLECTRA [Suspect]
     Active Substance: INFLIXIMAB-DYYB
     Dosage: 900 MG, EVERY 8 WEEKS
     Route: 042
     Dates: start: 20211203
  33. INFLECTRA [Suspect]
     Active Substance: INFLIXIMAB-DYYB
     Dosage: 900 MG, EVERY 8 WEEKS
     Route: 042
     Dates: start: 20220131
  34. INFLECTRA [Suspect]
     Active Substance: INFLIXIMAB-DYYB
     Dosage: 900 MG, EVERY 8 WEEKS
     Route: 042
     Dates: start: 20220328
  35. INFLECTRA [Suspect]
     Active Substance: INFLIXIMAB-DYYB
     Dosage: 900 MG, EVERY 8 WEEKS
     Route: 042
     Dates: start: 20220624
  36. INFLECTRA [Suspect]
     Active Substance: INFLIXIMAB-DYYB
     Dosage: 900 MG EVERY 8 WEEKS
     Route: 042
     Dates: start: 20220819
  37. INFLECTRA [Suspect]
     Active Substance: INFLIXIMAB-DYYB
     Dosage: 900 MG EVERY 8 WEEKS
     Route: 042
     Dates: start: 20220819
  38. INFLECTRA [Suspect]
     Active Substance: INFLIXIMAB-DYYB
     Dosage: 900 MG EVERY 8 WEEKS
     Route: 042
     Dates: start: 20221014
  39. INFLECTRA [Suspect]
     Active Substance: INFLIXIMAB-DYYB
     Dosage: 900 MG EVERY 8 WEEKS
     Route: 042
     Dates: start: 20230203
  40. INFLECTRA [Suspect]
     Active Substance: INFLIXIMAB-DYYB
     Dosage: 900 MG EVERY 8 WEEKS
     Route: 042
     Dates: start: 20230331
  41. INFLECTRA [Suspect]
     Active Substance: INFLIXIMAB-DYYB
     Dosage: 900 MG AFTER 10 WEEKS
     Route: 042
     Dates: start: 20230612
  42. AZATHIOPRINE [Concomitant]
     Active Substance: AZATHIOPRINE
     Dosage: 1 DF, UNKNOWN DOSE
     Dates: start: 201906

REACTIONS (26)
  - Loss of consciousness [Recovered/Resolved]
  - Hyperhidrosis [Unknown]
  - Vomiting [Unknown]
  - Malaise [Unknown]
  - Feeding disorder [Unknown]
  - Nausea [Not Recovered/Not Resolved]
  - Nasopharyngitis [Not Recovered/Not Resolved]
  - Anal fissure [Recovered/Resolved]
  - Neutrophil count increased [Unknown]
  - Monocyte count increased [Unknown]
  - Hyperventilation [Unknown]
  - Heart rate decreased [Unknown]
  - Arthralgia [Unknown]
  - Blood pressure systolic increased [Unknown]
  - Anorectal disorder [Not Recovered/Not Resolved]
  - Anal rash [Recovered/Resolved]
  - Condition aggravated [Recovered/Resolved]
  - Condition aggravated [Recovered/Resolved]
  - Nasal congestion [Unknown]
  - Cough [Unknown]
  - Off label use [Unknown]
  - Off label use [Unknown]
  - Off label use [Unknown]
  - Intentional product use issue [Unknown]
  - Inappropriate schedule of product administration [Unknown]
  - Incorrect dose administered [Unknown]

NARRATIVE: CASE EVENT DATE: 20180724
